FAERS Safety Report 12603496 (Version 2)
Quarter: 2016Q3

REPORT INFORMATION
  Report Type: Report from Study
  Country: US (occurrence: US)
  Receive Date: 20160728
  Receipt Date: 20160912
  Transmission Date: 20161109
  Serious: Yes (Other)
  Sender: FDA-Public Use
  Company Number: US-ABBVIE-16K-163-1681255-00

PATIENT
  Age: 33 Year
  Sex: Female

DRUGS (1)
  1. HUMIRA [Suspect]
     Active Substance: ADALIMUMAB
     Indication: COLITIS ULCERATIVE
     Route: 058
     Dates: end: 201608

REACTIONS (4)
  - Post procedural infection [Recovering/Resolving]
  - Small intestinal obstruction [Recovering/Resolving]
  - Drug specific antibody present [Unknown]
  - Hysterectomy [Unknown]

NARRATIVE: CASE EVENT DATE: 2016
